FAERS Safety Report 5935674-7 (Version None)
Quarter: 2008Q4

REPORT INFORMATION
  Report Type: 
  Country: None (occurrence: None)
  Receive Date: 20081029
  Receipt Date: 20081029
  Transmission Date: 20090506
  Serious: Yes (Disabling)
  Sender: FDA-Public Use
  Company Number: None

PATIENT
  Age: 42 Year
  Sex: Female
  Weight: 83.9154 kg

DRUGS (2)
  1. LAMICTAL [Suspect]
     Indication: COGNITIVE DISORDER
     Dosage: WEEKS 1-4 25MG + WK 5 100MG ONE TAB A DAY PO
     Route: 048
     Dates: start: 20080930, end: 20081012
  2. LAMICTAL [Suspect]
     Indication: CONVULSION
     Dosage: WEEKS 1-4 25MG + WK 5 100MG ONE TAB A DAY PO
     Route: 048
     Dates: start: 20080930, end: 20081012

REACTIONS (3)
  - DISCOMFORT [None]
  - RASH GENERALISED [None]
  - RASH PRURITIC [None]
